FAERS Safety Report 9236287 (Version 1)
Quarter: 2013Q2

REPORT INFORMATION
  Report Type: Spontaneous
  Country: US (occurrence: US)
  Receive Date: 20130417
  Receipt Date: 20130417
  Transmission Date: 20140414
  Serious: Yes (Other)
  Sender: FDA-Public Use
  Company Number: US-PFIZER INC-2013115582

PATIENT
  Age: 47 Year
  Sex: Female
  Weight: 97 kg

DRUGS (3)
  1. LEVOXYL [Suspect]
     Indication: HYPOTHYROIDISM
     Dosage: UNK, 1X/DAY
     Dates: start: 200809
  2. LEVOXYL [Suspect]
     Dosage: 300 UG, 1X/DAY
  3. CALCITRIOL [Concomitant]
     Indication: BLOOD CALCIUM DECREASED
     Dosage: 0.25 UG, 1X/DAY

REACTIONS (6)
  - Exostosis [Unknown]
  - Plantar fasciitis [Unknown]
  - Polyp [Unknown]
  - Ovarian disorder [Unknown]
  - Breast mass [Unknown]
  - Uterine disorder [Unknown]
